FAERS Safety Report 11999361 (Version 1)
Quarter: 2016Q1

REPORT INFORMATION
  Report Type: Spontaneous
  Country: US (occurrence: None)
  Receive Date: 20160203
  Receipt Date: 20160203
  Transmission Date: 20160526
  Serious: Yes (Disabling)
  Sender: FDA-Public Use
  Company Number: None

PATIENT
  Age: 83 Year
  Sex: Female
  Weight: 72.58 kg

DRUGS (13)
  1. RECLAST [Suspect]
     Active Substance: ZOLEDRONIC ACID
     Indication: OSTEOPOROSIS
     Dosage: 1X YEAR IV
     Dates: start: 20150812
  2. PROTONIX [Concomitant]
     Active Substance: PANTOPRAZOLE SODIUM
  3. CALCIUM WITH D [Concomitant]
     Active Substance: CALCIUM\VITAMIN D
  4. OMEGA 3 [Concomitant]
     Active Substance: OMEGA-3 FATTY ACIDS
  5. ZESTRIL [Concomitant]
     Active Substance: LISINOPRIL
  6. METOPROLOL. [Concomitant]
     Active Substance: METOPROLOL
  7. OCUVITE [Concomitant]
     Active Substance: VITAMINS
  8. PLAVIX [Concomitant]
     Active Substance: CLOPIDOGREL BISULFATE
  9. GLUCOSAMINE + CHONDROITIN [Concomitant]
  10. VITAMIN D3 [Concomitant]
     Active Substance: CHOLECALCIFEROL
  11. CENTRUM SILVER [Concomitant]
     Active Substance: MINERALS\VITAMINS
  12. XALATIN [Concomitant]
  13. VITAMIN C [Concomitant]
     Active Substance: ASCORBIC ACID

REACTIONS (4)
  - No reaction on previous exposure to drug [None]
  - Bone pain [None]
  - Tendon pain [None]
  - Myalgia [None]

NARRATIVE: CASE EVENT DATE: 20150812
